FAERS Safety Report 10192275 (Version 1)
Quarter: 2014Q2

REPORT INFORMATION
  Report Type: Report from Study
  Country: BR (occurrence: BR)
  Receive Date: 20140523
  Receipt Date: 20140523
  Transmission Date: 20141212
  Serious: Yes (Hospitalization, Other)
  Sender: FDA-Public Use
  Company Number: PHHY2014BR060184

PATIENT
  Sex: Female

DRUGS (1)
  1. SANDOSTATIN LAR [Suspect]
     Dosage: UNK UKN, UNK

REACTIONS (5)
  - Infection [Unknown]
  - Diarrhoea [Unknown]
  - Anaemia [Unknown]
  - Muscular weakness [Unknown]
  - Alopecia [Unknown]
